FAERS Safety Report 15410925 (Version 2)
Quarter: 2020Q3

REPORT INFORMATION
  Report Type: Spontaneous
  Country: IT (occurrence: IT)
  Receive Date: 20180921
  Receipt Date: 20181101
  Transmission Date: 20201104
  Serious: Yes (Other)
  Sender: FDA-Public Use
  Company Number: IT-TEVA-2018-IT-957295

PATIENT
  Age: 79 Year
  Sex: Male

DRUGS (8)
  1. RAMIPRIL/IDROCLOROTIAZIDE [Suspect]
     Active Substance: HYDROCHLOROTHIAZIDE\RAMIPRIL
     Indication: HYPERTENSION
     Dosage: 15 MILLIGRAM DAILY;
     Route: 048
     Dates: start: 20180101, end: 20180829
  2. BUPRENORPHINE. [Concomitant]
     Active Substance: BUPRENORPHINE
     Route: 065
  3. ATORVASTATIN [Concomitant]
     Active Substance: ATORVASTATIN
     Route: 065
  4. ALLOPURINOL. [Concomitant]
     Active Substance: ALLOPURINOL
     Route: 065
  5. RUPATADINE FUMARATE [Concomitant]
     Active Substance: RUPATADINE FUMARATE
     Route: 065
  6. EZETIMIBE. [Concomitant]
     Active Substance: EZETIMIBE
     Route: 065
  7. ETORICOXIB. [Suspect]
     Active Substance: ETORICOXIB
     Indication: POLYMYALGIA RHEUMATICA
     Dosage: 1 DOSAGE FORMS DAILY;
     Route: 048
     Dates: start: 20180101, end: 20180829
  8. METHYLPREDNISOLONE. [Concomitant]
     Active Substance: METHYLPREDNISOLONE
     Route: 065

REACTIONS (1)
  - Chronic kidney disease [Recovering/Resolving]

NARRATIVE: CASE EVENT DATE: 20180829
